FAERS Safety Report 25846284 (Version 1)
Quarter: 2025Q3

REPORT INFORMATION
  Report Type: Spontaneous
  Country: US (occurrence: US)
  Receive Date: 20250925
  Receipt Date: 20250925
  Transmission Date: 20251020
  Serious: No
  Sender: SANOFI AVENTIS
  Company Number: US-SA-2025SA284812

PATIENT
  Sex: Female
  Weight: 74.89 kg

DRUGS (2)
  1. DUPIXENT [Suspect]
     Active Substance: DUPILUMAB
     Indication: Eosinophilic oesophagitis
     Dosage: 300 MG, QW
     Route: 058
  2. BOTOX [Concomitant]
     Active Substance: ONABOTULINUMTOXINA

REACTIONS (3)
  - Pain [Unknown]
  - Depressed mood [Unknown]
  - Drug ineffective [Unknown]
